FAERS Safety Report 16906523 (Version 1)
Quarter: 2019Q4

REPORT INFORMATION
  Report Type: Other
  Country: GB (occurrence: GB)
  Receive Date: 20191011
  Receipt Date: 20191011
  Transmission Date: 20200122
  Serious: No
  Sender: FDA-Public Use
  Company Number: GB-LUPIN PHARMACEUTICALS INC.-2019-04786

PATIENT
  Age: 84 Year
  Sex: Female
  Weight: 55 kg

DRUGS (18)
  1. GAVISCON ADVANCED [Concomitant]
     Indication: ILL-DEFINED DISORDER
     Dosage: TAKE ONE TO TWO 5ML SPOONFULS 4 TIMES/DAY
     Route: 065
     Dates: start: 20190205, end: 20190305
  2. CO-AMOXICLAVE [Concomitant]
     Active Substance: AMOXICILLIN\CLAVULANATE POTASSIUM
     Indication: ILL-DEFINED DISORDER
     Dosage: TAKE ONE EVERY EIGHT HOURS FOR SEVEN DAYS
     Route: 065
     Dates: start: 20190409, end: 20190416
  3. ZAPAIN [Concomitant]
     Active Substance: ACETAMINOPHEN\CODEINE PHOSPHATE
     Indication: ILL-DEFINED DISORDER
     Dosage: UNK UNK, QD, TAKE 1 OR 2 4 TIMES/DAY
     Route: 065
     Dates: start: 20181124
  4. ATORVASTATIN [Concomitant]
     Active Substance: ATORVASTATIN
     Indication: ILL-DEFINED DISORDER
     Dosage: UNK UNK, QD, TAKE ONE DAILY IN THE EVENING TO LOWER CHOLESTEROL
     Route: 065
     Dates: start: 20181124
  5. OMEPRAZOLE. [Concomitant]
     Active Substance: OMEPRAZOLE
     Indication: ILL-DEFINED DISORDER
     Dosage: 1 DOSAGE FORM, BID
     Route: 065
     Dates: start: 20190301
  6. SODIUM PICOSULFATE [Concomitant]
     Active Substance: SODIUM PICOSULFATE
     Indication: ILL-DEFINED DISORDER
     Dosage: 5-10ML AT NIGHT. MAXIMUM 20ML
     Route: 065
     Dates: start: 20181124
  7. CARBOMER 980 [Concomitant]
     Active Substance: CARBOMER HOMOPOLYMER TYPE C (ALLYL PENTAERYTHRITOL CROSSLINKED)
     Indication: ILL-DEFINED DISORDER
     Dosage: ONE DROP 3-4 TIMES/DAY
     Route: 065
     Dates: start: 20180427
  8. GLYCERYL TRINITRATE [Concomitant]
     Active Substance: NITROGLYCERIN
     Indication: ILL-DEFINED DISORDER
     Dosage: UNK UNK, PRN, SPRAY 1-2 DOSES UNDER TONGUE AS NEEDED, THEN CL..
     Route: 065
     Dates: start: 20190219, end: 20190319
  9. ALGINATES [Concomitant]
     Indication: ILL-DEFINED DISORDER
     Dosage: UNK UNK, QID, 10ML-20ML 4 TIMES/DAY
     Route: 065
     Dates: start: 20181124
  10. AMITRIPTYLINE HYDROCHLORIDE. [Concomitant]
     Active Substance: AMITRIPTYLINE HYDROCHLORIDE
     Indication: ILL-DEFINED DISORDER
     Dosage: TAKE 1-2 TABLETS IN THE NIGHT
     Route: 065
     Dates: start: 20181124
  11. CEPHALEXIN. [Suspect]
     Active Substance: CEPHALEXIN
     Indication: PRODUCT USED FOR UNKNOWN INDICATION
     Dosage: 1 DOSAGE FORM, TID
     Route: 065
     Dates: start: 20190405
  12. LANSOPRAZOLE. [Concomitant]
     Active Substance: LANSOPRAZOLE
     Indication: ILL-DEFINED DISORDER
     Dosage: 1 DOSAGE FORM, BID
     Route: 065
     Dates: start: 20180427
  13. SALBUTAMOL [Concomitant]
     Active Substance: ALBUTEROL
     Indication: ILL-DEFINED DISORDER
     Dosage: UNK UNK, PRN, INHALE 2 DOSES AS NEEDED UP TO 4 TIMES A DAY
     Route: 065
     Dates: start: 20180427
  14. NITROFURANTOIN. [Concomitant]
     Active Substance: NITROFURANTOIN
     Indication: ILL-DEFINED DISORDER
     Dosage: 1 DOSAGE FORM, BID, TAKE ONE TWICE DAILY FOR SEVEN DAYS
     Route: 065
     Dates: start: 20181124
  15. FOSTAIR [Concomitant]
     Active Substance: BECLOMETHASONE\FORMOTEROL
     Indication: ILL-DEFINED DISORDER
     Dosage: 2 DOSAGE FORM, BID
     Route: 055
     Dates: start: 20181114
  16. TRIMETHOPRIM. [Concomitant]
     Active Substance: TRIMETHOPRIM
     Indication: ILL-DEFINED DISORDER
     Dosage: 1 DOSAGE FORM, BID
     Route: 065
     Dates: start: 20190328, end: 20190404
  17. LEVOTHYROXINE. [Concomitant]
     Active Substance: LEVOTHYROXINE
     Indication: ILL-DEFINED DISORDER
     Dosage: 1 DOSAGE FORM, QD, TAKE ONE EACH MORNING
     Route: 065
     Dates: start: 20180427
  18. CLOPIDOGREL [Concomitant]
     Active Substance: CLOPIDOGREL BISULFATE
     Indication: ILL-DEFINED DISORDER
     Dosage: 1 DOSAGE FORM, QD
     Route: 065
     Dates: start: 20180427

REACTIONS (1)
  - Vomiting [Recovering/Resolving]
